FAERS Safety Report 4465405-1 (Version None)
Quarter: 2004Q3

REPORT INFORMATION
  Report Type: 
  Country: None (occurrence: None)
  Receive Date: 20040930
  Receipt Date: 20040917
  Transmission Date: 20050211
  Serious: Yes (Hospitalization)
  Sender: FDA-Public Use
  Company Number: A01200404508

PATIENT
  Age: 35 Year
  Sex: Male

DRUGS (2)
  1. (ZOLPIDEM) - TABLET - UNIT DOSE :  UNKNOWN / UNKNOWN - UNIT DOSE : UNK [Suspect]
     Indication: DRUG ABUSER
     Dosage: 10 MG QD / 400 MG; ORAL/INTRAVENOUS NOS
     Route: 048
  2. (ZOLPIDEM) - TABLET - UNIT DOSE :  UNKNOWN / UNKNOWN - UNIT DOSE : UNK [Suspect]
     Indication: INSOMNIA
     Dosage: 10 MG QD / 400 MG; ORAL/INTRAVENOUS NOS
     Route: 048

REACTIONS (13)
  - CYANOSIS [None]
  - DRUG ABUSER [None]
  - DRUG DEPENDENCE [None]
  - DRUG TOLERANCE INCREASED [None]
  - DRUG WITHDRAWAL SYNDROME [None]
  - EUPHORIC MOOD [None]
  - FEELING HOT AND COLD [None]
  - INTENTIONAL MISUSE [None]
  - LACRIMATION INCREASED [None]
  - PAIN IN EXTREMITY [None]
  - PERIPHERAL EMBOLISM [None]
  - RHINORRHOEA [None]
  - YAWNING [None]
